FAERS Safety Report 6129697-5 (Version None)
Quarter: 2009Q1

REPORT INFORMATION
  Report Type: 
  Country: None (occurrence: None)
  Receive Date: 20090323
  Receipt Date: 20090323
  Transmission Date: 20090719
  Serious: Yes (Life-Threatening)
  Sender: FDA-Public Use
  Company Number: None

PATIENT
  Sex: Female
  Weight: 90.7194 kg

DRUGS (1)
  1. METOCLOPRAMIDE HCL [Suspect]
     Indication: NAUSEA
     Dosage: 1 TAB 3-4 TIMES DAILY PO
     Route: 048
     Dates: start: 20030501, end: 20040401

REACTIONS (18)
  - BACK PAIN [None]
  - BALANCE DISORDER [None]
  - BLEPHAROSPASM [None]
  - CLUMSINESS [None]
  - COORDINATION ABNORMAL [None]
  - DEAFNESS UNILATERAL [None]
  - DYSGRAPHIA [None]
  - DYSPEPSIA [None]
  - DYSPHAGIA [None]
  - FATIGUE [None]
  - GASTROINTESTINAL DISORDER [None]
  - HYPERHIDROSIS [None]
  - ILL-DEFINED DISORDER [None]
  - INSOMNIA [None]
  - MOTOR DYSFUNCTION [None]
  - MOVEMENT DISORDER [None]
  - MUSCULAR WEAKNESS [None]
  - TREMOR [None]
